FAERS Safety Report 8109578-8 (Version None)
Quarter: 2012Q1

REPORT INFORMATION
  Report Type: 
  Country: None (occurrence: None)
  Receive Date: 20120202
  Receipt Date: 20120127
  Transmission Date: 20120608
  Serious: Yes (Hospitalization, Other)
  Sender: FDA-Public Use
  Company Number: JP-PFIZER INC-2012023818

PATIENT
  Age: 39 Year
  Sex: Male

DRUGS (2)
  1. LYRICA [Suspect]
     Indication: DIABETIC NEUROPATHY
     Dosage: 150 MG/DAY
     Route: 048
     Dates: start: 20110916, end: 20111012
  2. LYRICA [Suspect]
     Indication: HYPOAESTHESIA
     Dosage: 300 MG/DAY
     Route: 048
     Dates: start: 20111013, end: 20111224

REACTIONS (2)
  - HYPOKALAEMIA [None]
  - BLOOD CREATINE PHOSPHOKINASE INCREASED [None]
